FAERS Safety Report 6548893-6 (Version None)
Quarter: 2010Q1

REPORT INFORMATION
  Report Type: 
  Country: None (occurrence: None)
  Receive Date: 20100125
  Receipt Date: 20100113
  Transmission Date: 20100710
  Serious: Yes (Hospitalization)
  Sender: FDA-Public Use
  Company Number: DK-BIOGENIDEC-2009BI034657

PATIENT
  Age: 32 Year
  Sex: Female

DRUGS (10)
  1. TYSABRI [Suspect]
     Indication: MULTIPLE SCLEROSIS
     Route: 042
     Dates: start: 20081201, end: 20090901
  2. LANSOPRAZOLE [Concomitant]
  3. ALOPAM [Concomitant]
  4. HARMONET [Concomitant]
  5. IBUMETIN [Concomitant]
  6. IMOVANE [Concomitant]
  7. MODAFINIL [Concomitant]
  8. ACETAMINOPHEN [Concomitant]
  9. AMITRIPTYLINE HYDROCHLORIDE [Concomitant]
  10. LYRICA [Concomitant]

REACTIONS (1)
  - CERVIX CARCINOMA [None]
